FAERS Safety Report 11591244 (Version 1)
Quarter: 2015Q4

REPORT INFORMATION
  Report Type: Spontaneous
  Country: PL (occurrence: PL)
  Receive Date: 20151004
  Receipt Date: 20151004
  Transmission Date: 20160304
  Serious: Yes (Hospitalization)
  Sender: FDA-Public Use
  Company Number: PL-TEVA-597251ACC

PATIENT
  Age: 61 Year
  Sex: Female
  Weight: 70 kg

DRUGS (11)
  1. GENSULIN R [Concomitant]
  2. AMLOPIN [Concomitant]
     Active Substance: AMLODIPINE BESYLATE
  3. KALIPOZ PROLONGATUM [Concomitant]
     Dosage: DOSE: 2 X 1 TABLET
  4. TEMOZOLOMIDE. [Suspect]
     Active Substance: TEMOZOLOMIDE
     Route: 048
     Dates: start: 20150608, end: 20150710
  5. MANNITOL 15% [Concomitant]
     Dosage: 200 ML DAILY;
  6. DEPAKINE CHRONO 500 [Concomitant]
     Dosage: 2 X 1 TABLET
  7. DEXAVEN [Concomitant]
     Active Substance: DEXAMETHASONE
     Dosage: 8 MILLIGRAM DAILY;
  8. FUROSEMID [Concomitant]
     Active Substance: FUROSEMIDE
     Dosage: DOSE: 1X
     Dates: start: 20150708
  9. IPP 20 [Concomitant]
     Dosage: DOSE: 2X1
  10. BISEPTOL [Concomitant]
     Active Substance: SULFAMETHOXAZOLE\TRIMETHOPRIM
  11. ZOFRAN [Concomitant]
     Active Substance: ONDANSETRON HYDROCHLORIDE
     Dates: start: 20150707

REACTIONS (2)
  - Haemorrhagic diathesis [Recovering/Resolving]
  - Thrombocytopenia [Recovering/Resolving]

NARRATIVE: CASE EVENT DATE: 20150709
